FAERS Safety Report 4853034-7 (Version None)
Quarter: 2005Q4

REPORT INFORMATION
  Report Type: 
  Country: None (occurrence: None)
  Receive Date: 20051212
  Receipt Date: 20051123
  Transmission Date: 20060501
  Serious: Yes (Life-Threatening)
  Sender: FDA-Public Use
  Company Number: US200511000017

PATIENT
  Age: 78 Year
  Sex: Male
  Weight: 64 kg

DRUGS (4)
  1. ALIMTA [Suspect]
     Indication: NON-SMALL CELL LUNG CANCER STAGE IV
     Dosage: 910 MG
     Dates: start: 20051027, end: 20051027
  2. DECADRON [Concomitant]
  3. VITAMIN B 12 (CYANOCOBALAMIN) INJECTION [Concomitant]
  4. FOLIC ACID [Concomitant]

REACTIONS (5)
  - ANAPHYLACTIC REACTION [None]
  - FEELING HOT [None]
  - FIBRIN D DIMER INCREASED [None]
  - INFUSION RELATED REACTION [None]
  - SINUS TACHYCARDIA [None]
